FAERS Safety Report 8113215-6 (Version None)
Quarter: 2012Q1

REPORT INFORMATION
  Report Type: 
  Country: None (occurrence: None)
  Receive Date: 20120203
  Receipt Date: 20120124
  Transmission Date: 20120608
  Serious: Yes (Other)
  Sender: FDA-Public Use
  Company Number: PHHY2011JP103622

PATIENT
  Sex: Male
  Weight: 98 kg

DRUGS (10)
  1. URINORM [Concomitant]
     Indication: HYPERURICAEMIA
     Dosage: 100 MG, UNK
     Dates: start: 20040824
  2. ZETIA [Concomitant]
     Indication: HYPERCHOLESTEROLAEMIA
     Dosage: 10 MG, UNK
     Dates: start: 20090824
  3. LOSARTAN POTASSIUM [Suspect]
     Dates: start: 20040824
  4. ACECOL [Suspect]
     Dates: start: 20040824
  5. ATELEC [Concomitant]
     Indication: HYPERTENSION
     Dosage: 20 MG, UNK
     Dates: start: 20090824, end: 20101017
  6. URALYT [Concomitant]
     Indication: HYPERURICAEMIA
     Dosage: 3 G, UNK
     Dates: start: 20040824, end: 20100308
  7. ADALAT [Concomitant]
     Indication: HYPERTENSION
     Dosage: 40 MG, UNK
     Dates: start: 20101018
  8. TANATRIL [Suspect]
  9. LANSOPRAZOLE [Concomitant]
     Indication: GASTROOESOPHAGEAL REFLUX DISEASE
     Dosage: 15 MG, UNK
     Dates: start: 20040824
  10. RASILEZ [Suspect]
     Indication: HYPERTENSION
     Dosage: 150 MG
     Route: 048
     Dates: start: 20100209

REACTIONS (3)
  - RENAL DISORDER [None]
  - CONDITION AGGRAVATED [None]
  - HYPERTENSION [None]
